FAERS Safety Report 23302802 (Version 2)
Quarter: 2024Q1

REPORT INFORMATION
  Report Type: Spontaneous
  Country: IN (occurrence: IN)
  Receive Date: 20231215
  Receipt Date: 20240101
  Transmission Date: 20240410
  Serious: Yes (Hospitalization, Other)
  Sender: FDA-Public Use
  Company Number: IN-TORRENT-00003418

PATIENT
  Age: 38 Year
  Sex: Female

DRUGS (2)
  1. ASPIRIN [Suspect]
     Active Substance: ASPIRIN
     Indication: Coronary artery disease
     Dosage: UNKNOWN
     Route: 065
  2. CLOPIDOGREL [Suspect]
     Active Substance: CLOPIDOGREL BISULFATE
     Indication: Coronary artery disease
     Dosage: UNKNOWN
     Route: 065

REACTIONS (4)
  - Foetal death [Unknown]
  - Drug withdrawal syndrome [Unknown]
  - Stillbirth [Unknown]
  - Exposure during pregnancy [Unknown]
